FAERS Safety Report 16478740 (Version 5)
Quarter: 2021Q1

REPORT INFORMATION
  Report Type: Spontaneous
  Country: US (occurrence: US)
  Receive Date: 20190626
  Receipt Date: 20210209
  Transmission Date: 20210419
  Serious: No
  Sender: FDA-Public Use
  Company Number: US-PFIZER INC-2019272190

PATIENT
  Age: 75 Year
  Sex: Female
  Weight: 113 kg

DRUGS (1)
  1. AROMASIN [Suspect]
     Active Substance: EXEMESTANE
     Indication: BREAST CANCER FEMALE
     Dosage: 25 MG, DAILY
     Dates: start: 2017

REACTIONS (2)
  - Product dose omission issue [Unknown]
  - Amnesia [Not Recovered/Not Resolved]
